FAERS Safety Report 5945742-1 (Version None)
Quarter: 2008Q4

REPORT INFORMATION
  Report Type: 
  Country: None (occurrence: None)
  Receive Date: 20081105
  Receipt Date: 20081028
  Transmission Date: 20090506
  Serious: Yes (Life-Threatening, Hospitalization)
  Sender: FDA-Public Use
  Company Number: 2008JP003380

PATIENT
  Age: 59 Year
  Sex: Male
  Weight: 67.6 kg

DRUGS (22)
  1. FUNGUARD(MICAFUNGIN INJECTION) FUNGUARD(MICAFUNGIM) INJECTION [Suspect]
     Indication: INFECTION
     Dosage: SEE IMAGE
     Route: 041
     Dates: start: 20080218, end: 20080304
  2. FUNGUARD(MICAFUNGIN INJECTION) FUNGUARD(MICAFUNGIM) INJECTION [Suspect]
     Indication: INFECTION
     Dosage: SEE IMAGE
     Route: 041
     Dates: start: 20080305, end: 20080311
  3. FUNGUARD(MICAFUNGIN INJECTION) FUNGUARD(MICAFUNGIM) INJECTION [Suspect]
     Indication: INFECTION
     Dosage: SEE IMAGE
     Route: 041
     Dates: start: 20080312, end: 20080316
  4. CYCLOPHOSPHAMIDE [Suspect]
     Indication: BONE MARROW CONDITIONING REGIMEN
     Dosage: 4000 MG
     Dates: start: 20080223, end: 20080224
  5. CONTOMIN(CHLORPROMAZINE HYDROCLORIDE) INJECTION [Concomitant]
     Indication: NAUSEA
     Dosage: 10 MG  UNK
     Dates: start: 20080224
  6. METHOTREXATE [Concomitant]
  7. PROGRAF [Concomitant]
  8. UROMITEXAN (MESNA) INJECTION [Concomitant]
  9. DECADRON (DEXAMETHASONE PHOSPHATE) INJECTION [Concomitant]
  10. PRIMPERAN (METOCLOPRAMIDE) INJECTION [Concomitant]
  11. KYTRIL (GRANISETRON) INJECTION [Concomitant]
  12. HAPTOGLOBINS (HAPTOGLOBINS) INJECTION [Concomitant]
  13. NEU-UP (NARTOGRASTIM) INJECTION [Concomitant]
  14. PARIET (RABEPRAZOLE SODIUM) PER ORAL NOS [Concomitant]
  15. CIPROXAN (CIPROFLOXACIN HYDROCHLORIDE) PER ORAL NOS [Concomitant]
  16. ZOVIRAX (ACICLOVIR) PER ORAL NOS [Concomitant]
  17. LENDORMIN (BROTIZOLAM) PER ORAL NOS [Concomitant]
  18. BIOFERMIN R (STREPTOCOCCUS FAECALIS) PER ORAL NOS [Concomitant]
  19. LOPEMIN (LOPERAMIDE HYDROCHLORIDE) CAPSULE [Concomitant]
  20. MAXIPIME [Concomitant]
  21. EXACIN (ISEPAMICIN SULFATE) INJECTION [Concomitant]
  22. FENTANYL (FENTANYL) INJECTION [Concomitant]

REACTIONS (8)
  - ALANINE AMINOTRANSFERASE INCREASED [None]
  - APPARENT LIFE THREATENING EVENT [None]
  - BLOOD ALKALINE PHOSPHATASE INCREASED [None]
  - ENTEROCOLITIS [None]
  - FEBRILE NEUTROPENIA [None]
  - NAUSEA [None]
  - STEM CELL TRANSPLANT [None]
  - STOMATITIS [None]
